FAERS Safety Report 7737502-6 (Version None)
Quarter: 2011Q3

REPORT INFORMATION
  Report Type: 
  Country: None (occurrence: None)
  Receive Date: 20110908
  Receipt Date: 20110829
  Transmission Date: 20111222
  Serious: Yes (Hospitalization)
  Sender: FDA-Public Use
  Company Number: FR-GLAXOSMITHKLINE-B0744407A

PATIENT
  Age: 60 Year
  Sex: Female

DRUGS (1)
  1. ZOFRAN [Suspect]
     Indication: PROCEDURAL VOMITING
     Route: 065

REACTIONS (1)
  - ILEUS PARALYTIC [None]
